FAERS Safety Report 4705536-1 (Version None)
Quarter: 2005Q3

REPORT INFORMATION
  Report Type: 
  Country: None (occurrence: None)
  Receive Date: 20050701
  Receipt Date: 20050125
  Transmission Date: 20060218
  Serious: Yes (Hospitalization, Disabling, Other)
  Sender: FDA-Public Use
  Company Number: US-ABBOTT-05P-163-0288949-00

PATIENT
  Sex: Male
  Weight: 29.056 kg

DRUGS (2)
  1. BIAXIN [Suspect]
     Indication: PHARYNGITIS
     Dates: start: 20010515, end: 20010516
  2. CEFADROXIL [Concomitant]
     Indication: PHARYNGITIS STREPTOCOCCAL
     Dates: start: 20010504, end: 20010511

REACTIONS (55)
  - ABDOMINAL PAIN [None]
  - ABNORMAL BEHAVIOUR [None]
  - ABNORMAL SENSATION IN EYE [None]
  - ACINETOBACTER INFECTION [None]
  - AGITATION [None]
  - ATELECTASIS [None]
  - BLOOD ALBUMIN DECREASED [None]
  - BLOOD GASES ABNORMAL [None]
  - BLOOD GLUCOSE INCREASED [None]
  - BOWEL SOUNDS ABNORMAL [None]
  - CARDIAC MURMUR [None]
  - CONSTIPATION [None]
  - DEPRESSED LEVEL OF CONSCIOUSNESS [None]
  - DIARRHOEA [None]
  - DYSPHAGIA [None]
  - DYSPHASIA [None]
  - EYELID DISORDER [None]
  - FATIGUE [None]
  - FEAR [None]
  - FEEDING DISORDER [None]
  - FLUID OVERLOAD [None]
  - GENERALISED OEDEMA [None]
  - HYPONATRAEMIA [None]
  - IMPAIRED HEALING [None]
  - LABORATORY TEST ABNORMAL [None]
  - LETHARGY [None]
  - LYMPHADENOPATHY [None]
  - NASAL CONGESTION [None]
  - ODYNOPHAGIA [None]
  - ORAL INTAKE REDUCED [None]
  - ORAL PAIN [None]
  - OTORRHOEA [None]
  - OXYGEN SATURATION DECREASED [None]
  - PAIN [None]
  - PANCYTOPENIA [None]
  - PCO2 INCREASED [None]
  - PERIORBITAL OEDEMA [None]
  - PHOTOPHOBIA [None]
  - PLATELET COUNT INCREASED [None]
  - PLEURAL EFFUSION [None]
  - POST-TRAUMATIC STRESS DISORDER [None]
  - PRODUCTIVE COUGH [None]
  - PULSE PRESSURE INCREASED [None]
  - PURULENT DISCHARGE [None]
  - RESPIRATORY DISORDER [None]
  - RESPIRATORY FAILURE [None]
  - STEVENS-JOHNSON SYNDROME [None]
  - SYMBLEPHARON [None]
  - TONSILLAR HYPERTROPHY [None]
  - TOXIC EPIDERMAL NECROLYSIS [None]
  - URINE OUTPUT DECREASED [None]
  - VISION BLURRED [None]
  - VISUAL ACUITY REDUCED [None]
  - VOMITING [None]
  - WHITE BLOOD CELL COUNT INCREASED [None]
